FAERS Safety Report 4925269-6 (Version None)
Quarter: 2006Q1

REPORT INFORMATION
  Report Type: 
  Country: None (occurrence: None)
  Receive Date: 20060228
  Receipt Date: 20050309
  Transmission Date: 20060701
  Serious: Yes (Other)
  Sender: FDA-Public Use
  Company Number: US-GLAXOSMITHKLINE-A0549007A

PATIENT
  Sex: Female

DRUGS (3)
  1. ZOFRAN [Suspect]
     Indication: NAUSEA
     Route: 042
     Dates: start: 20040901, end: 20040901
  2. REGLAN [Suspect]
     Indication: VOMITING
     Route: 065
     Dates: start: 20040901, end: 20040901
  3. PHENERGAN [Suspect]
     Indication: VOMITING
     Route: 065
     Dates: start: 20040901, end: 20040901

REACTIONS (5)
  - ABORTION SPONTANEOUS [None]
  - CARDIAC FLUTTER [None]
  - DRUG INTERACTION [None]
  - INTRA-UTERINE DEATH [None]
  - VAGINAL HAEMORRHAGE [None]
